FAERS Safety Report 4905410-1 (Version None)
Quarter: 2006Q1

REPORT INFORMATION
  Report Type: 
  Country: None (occurrence: None)
  Receive Date: 20060203
  Receipt Date: 20060126
  Transmission Date: 20060701
  Serious: Yes (Life-Threatening, Hospitalization)
  Sender: FDA-Public Use
  Company Number: 2006EU000204

PATIENT
  Age: 65 Year
  Sex: Male

DRUGS (12)
  1. FK506 (TACROLIMUS) CAPSULE [Suspect]
     Indication: RENAL TRANSPLANT
     Dosage: 4.5 MG, BID, ORAL
     Route: 048
     Dates: start: 20030530, end: 20040517
  2. DACLIZUMAB (DACLIZUMAB) [Suspect]
     Indication: RENAL TRANSPLANT
     Dosage: 180 MG, IV NOS
     Route: 042
     Dates: start: 20030530, end: 20030729
  3. MYCOPHENOLATE MOFETIL (MYCOPHENOLATE MOFETIL) [Suspect]
     Indication: RENAL TRANSPLANT
     Dosage: 1 G, BID, ORAL
     Route: 048
     Dates: start: 20030531
  4. PREDNISONE [Suspect]
     Indication: RENAL TRANSPLANT
     Dosage: 90 MG, ORAL
     Route: 048
     Dates: start: 20030530
  5. INSULIN [Concomitant]
  6. SULFAMETHOXAZOLE + TRIMETHOPRIM [Concomitant]
  7. FUROSEMIDE [Concomitant]
  8. FERROUS SULPHATE (FERROUS SULFATE) [Concomitant]
  9. FOLIC ACID [Concomitant]
  10. VITAMIN B COMPLEX (CALCIUM PANTOTHENATE, NICOTINAMIDE, THIAMINE HYDROC [Concomitant]
  11. OMEPRAZOLE [Concomitant]
  12. POLARAMINE [Concomitant]

REACTIONS (1)
  - MENINGITIS CRYPTOCOCCAL [None]
